FAERS Safety Report 4919544-9 (Version None)
Quarter: 2006Q1

REPORT INFORMATION
  Report Type: 
  Country: None (occurrence: None)
  Receive Date: 20060222
  Receipt Date: 20051006
  Transmission Date: 20060701
  Serious: Yes (Disabling)
  Sender: FDA-Public Use
  Company Number: US-MERCK-0510USA06204

PATIENT
  Age: 44 Year
  Sex: Female
  Weight: 98 kg

DRUGS (1)
  1. VIOXX [Suspect]
     Indication: HEADACHE
     Route: 048
     Dates: start: 20010101, end: 20031201

REACTIONS (5)
  - ANXIETY [None]
  - ASTHENIA [None]
  - CHEST PAIN [None]
  - MEMORY IMPAIRMENT [None]
  - OXYGEN CONSUMPTION DECREASED [None]
